FAERS Safety Report 8159516-7 (Version None)
Quarter: 2012Q1

REPORT INFORMATION
  Report Type: 
  Country: None (occurrence: None)
  Receive Date: 20120223
  Receipt Date: 20111116
  Transmission Date: 20120608
  Serious: Yes (Death)
  Sender: FDA-Public Use
  Company Number: DK-ROCHE-1037368

PATIENT

DRUGS (2)
  1. AVASTIN [Suspect]
     Indication: GLIOBLASTOMA MULTIFORME
  2. TEMOZOLOMIDE [Suspect]
     Indication: GLIOBLASTOMA MULTIFORME

REACTIONS (1)
  - DEATH [None]
